FAERS Safety Report 9262856 (Version 1)
Quarter: 2013Q2

REPORT INFORMATION
  Report Type: Report from Study
  Country: MX (occurrence: MX)
  Receive Date: 20130430
  Receipt Date: 20130430
  Transmission Date: 20140414
  Serious: Yes (Death)
  Sender: FDA-Public Use
  Company Number: PHHY2013MX041787

PATIENT
  Sex: Male

DRUGS (1)
  1. EXELON PATCH [Suspect]
     Indication: PARKINSON^S DISEASE
     Dosage: 4.6 MG, DAILY
     Route: 062
     Dates: start: 201202, end: 201204

REACTIONS (1)
  - Brain neoplasm [Fatal]
